FAERS Safety Report 5109827-4 (Version None)
Quarter: 2006Q3

REPORT INFORMATION
  Report Type: 
  Country: None (occurrence: None)
  Receive Date: 20060918
  Receipt Date: 20060918
  Transmission Date: 20061208
  Serious: Yes (Hospitalization, Disabling, Other)
  Sender: FDA-Public Use
  Company Number: None

PATIENT
  Age: 20 Year
  Sex: Female
  Weight: 60 kg

DRUGS (1)
  1. RO ACCUTANE 20 MG ROCHE [Suspect]
     Indication: ACNE
     Dosage: 3 CAPSULES OF 20 MG 3 PO
     Route: 048
     Dates: start: 19990103, end: 19990327

REACTIONS (12)
  - AMENORRHOEA [None]
  - CYST [None]
  - DEPRESSION [None]
  - ILL-DEFINED DISORDER [None]
  - INFERTILITY [None]
  - INSOMNIA [None]
  - LIBIDO DECREASED [None]
  - MENOPAUSAL SYMPTOMS [None]
  - MUSCULOSKELETAL STIFFNESS [None]
  - NECK PAIN [None]
  - PREMENSTRUAL SYNDROME [None]
  - SUICIDAL IDEATION [None]
